FAERS Safety Report 7204956-3 (Version None)
Quarter: 2010Q4

REPORT INFORMATION
  Report Type: 
  Country: None (occurrence: None)
  Receive Date: 20101230
  Receipt Date: 20101222
  Transmission Date: 20110411
  Serious: Yes (Death, Hospitalization)
  Sender: FDA-Public Use
  Company Number: JP-JNJFOC-20100209303

PATIENT
  Sex: Female
  Weight: 49 kg

DRUGS (9)
  1. REMICADE [Suspect]
     Indication: BEHCET'S SYNDROME
     Route: 042
  2. REMICADE [Suspect]
     Route: 042
  3. REMICADE [Suspect]
     Route: 042
  4. REMICADE [Suspect]
     Route: 042
  5. NEORAL [Suspect]
     Indication: ILL-DEFINED DISORDER
     Route: 048
  6. NEORAL [Suspect]
     Route: 048
  7. PREDNISOLONE [Concomitant]
     Route: 048
  8. PREDNISOLONE [Concomitant]
     Route: 048
  9. PREDNISOLONE [Concomitant]
     Route: 048

REACTIONS (2)
  - BEHCET'S SYNDROME [None]
  - CONGESTIVE CARDIOMYOPATHY [None]
